FAERS Safety Report 8900704 (Version 1)
Quarter: 2012Q4

REPORT INFORMATION
  Report Type: 
  Country: US (occurrence: US)
  Receive Date: 20121109
  Receipt Date: 20121109
  Transmission Date: 20130627
  Serious: No
  Sender: FDA-Public Use
  Company Number: US-PFIZER INC-2012278596

PATIENT
  Age: 79 Year
  Sex: Female
  Weight: 61.22 kg

DRUGS (3)
  1. CELEBREX [Suspect]
     Indication: INFLAMMATION
     Dosage: 200 mg, daily
     Route: 048
     Dates: start: 201210
  2. LIPITOR [Concomitant]
     Indication: BLOOD CHOLESTEROL ABNORMAL
     Dosage: 20 mg, daily
  3. HYZAAR [Concomitant]
     Indication: BLOOD PRESSURE ABNORMAL
     Dosage: 50/12.5 mg, Unknown frequency

REACTIONS (1)
  - Dry mouth [Not Recovered/Not Resolved]
